FAERS Safety Report 10813674 (Version 1)
Quarter: 2015Q1

REPORT INFORMATION
  Report Type: Other
  Country: GB (occurrence: GB)
  Receive Date: 20150218
  Receipt Date: 20150218
  Transmission Date: 20150721
  Serious: Yes (Other)
  Sender: FDA-Public Use
  Company Number: GB-MYLANLABS-2015M1003511

PATIENT

DRUGS (20)
  1. PLASMA-LYTE 148 [Suspect]
     Active Substance: MAGNESIUM CHLORIDE\POTASSIUM CHLORIDE\SODIUM ACETATE\SODIUM CHLORIDE\SODIUM GLUCONATE
     Indication: HIP ARTHROPLASTY
  2. PROPOFOL. [Suspect]
     Active Substance: PROPOFOL
     Indication: EPIDURAL ANAESTHESIA
     Dosage: 0.3-0.8 MCG/ML
     Route: 065
  3. FENTANYL. [Suspect]
     Active Substance: FENTANYL
     Indication: EPIDURAL ANAESTHESIA
     Dosage: GRADUAL EPIDURAL UP TO ACHIEVED IN 20 MIN
     Route: 008
  4. POTASSIUM CHLORIDE. [Suspect]
     Active Substance: POTASSIUM CHLORIDE
     Indication: PRODUCT USED FOR UNKNOWN INDICATION
     Dosage: 80ML/HR (20MMOL)
     Route: 065
  5. SODIUM CHLORIDE INTRAVENOUS INFUSION BP 0.9%W/V [Suspect]
     Active Substance: SODIUM CHLORIDE
     Indication: PRODUCT USED FOR UNKNOWN INDICATION
     Dosage: 500 ML, UNK
     Route: 042
  6. CHIROCAINE [Suspect]
     Active Substance: LEVOBUPIVACAINE HYDROCHLORIDE
     Indication: EPIDURAL ANAESTHESIA
     Dosage: GRADULA EPID. TOP UP TO 10 ML 0.5%
     Route: 008
  7. DIAMORPHINE [Suspect]
     Active Substance: DIACETYLMORPHINE
     Indication: SURGERY
     Dosage: 200 ?G, UNK
     Route: 008
  8. ATENOLOL. [Concomitant]
     Active Substance: ATENOLOL
     Indication: HYPERTENSION
     Dosage: UNK
     Route: 065
  9. PLASMA-LYTE 148 [Suspect]
     Active Substance: MAGNESIUM CHLORIDE\POTASSIUM CHLORIDE\SODIUM ACETATE\SODIUM CHLORIDE\SODIUM GLUCONATE
     Indication: ANAESTHETIC PREMEDICATION
     Route: 042
     Dates: start: 20150116
  10. CANDESARTAN [Concomitant]
     Active Substance: CANDESARTAN
     Indication: HYPERTENSION
     Dosage: UNK
     Route: 065
  11. EPHEDRINE [Suspect]
     Active Substance: EPHEDRINE
     Indication: PRODUCT USED FOR UNKNOWN INDICATION
     Dosage: 6 MG, 2 DOSES
     Route: 065
  12. GENTAMICIN. [Suspect]
     Active Substance: GENTAMICIN
     Indication: ANAESTHETIC PREMEDICATION
     Dosage: 80 MG, UNK
     Route: 065
  13. MARCAIN HEAVY [Suspect]
     Active Substance: BUPIVACAINE HYDROCHLORIDE
     Indication: EPIDURAL ANAESTHESIA
     Dosage: 0.5%/1 ML SPINAL
     Route: 008
  14. SODIUM LACTATE SOLUTION [Suspect]
     Active Substance: SODIUM LACTATE
     Indication: PRODUCT USED FOR UNKNOWN INDICATION
     Dosage: 500 ML, UNK
     Route: 065
  15. PREGABALIN. [Suspect]
     Active Substance: PREGABALIN
     Indication: ANAESTHETIC PREMEDICATION
     Dosage: UNK
     Route: 065
  16. TEICOPLANIN [Suspect]
     Active Substance: TEICOPLANIN
     Indication: ANAESTHETIC PREMEDICATION
     Dosage: 600 G, UNK
     Route: 065
  17. LERCANIDIPINE [Concomitant]
     Active Substance: LERCANIDIPINE
     Indication: HYPERTENSION
     Dosage: UNK
     Route: 065
  18. OMEPRAZOLE. [Suspect]
     Active Substance: OMEPRAZOLE
     Indication: ANAESTHETIC PREMEDICATION
     Dosage: UNK
     Route: 065
  19. FENTANYL. [Suspect]
     Active Substance: FENTANYL
     Dosage: 15 ?G, UNK
     Route: 008
  20. METARAMINOL [Suspect]
     Active Substance: METARAMINOL
     Indication: PRODUCT USED FOR UNKNOWN INDICATION
     Dosage: 0.25 MG,3 DOSES
     Route: 065

REACTIONS (4)
  - Confusion postoperative [Unknown]
  - Metabolic alkalosis [Unknown]
  - Mental status changes postoperative [Recovering/Resolving]
  - Unevaluable event [Unknown]

NARRATIVE: CASE EVENT DATE: 20150116
